FAERS Safety Report 14436876 (Version 1)
Quarter: 2018Q1

REPORT INFORMATION
  Report Type: Spontaneous
  Country: US (occurrence: US)
  Receive Date: 20180125
  Receipt Date: 20180125
  Transmission Date: 20180509
  Serious: Yes (Life-Threatening, Hospitalization, Other)
  Sender: FDA-Public Use
  Company Number: US-009507513-1801USA007314

PATIENT
  Sex: Male

DRUGS (1)
  1. KEYTRUDA [Suspect]
     Active Substance: PEMBROLIZUMAB
     Dosage: 200MG IV INFUSION /OVER 30 MINUTES
     Route: 042
     Dates: start: 20180117, end: 20180117

REACTIONS (6)
  - Lactic acidosis [Recovering/Resolving]
  - Pyrexia [Recovering/Resolving]
  - Procalcitonin abnormal [Recovering/Resolving]
  - Chills [Recovering/Resolving]
  - Sepsis [Recovering/Resolving]
  - Hypertension [Recovering/Resolving]

NARRATIVE: CASE EVENT DATE: 20180117
